FAERS Safety Report 6297309-6 (Version None)
Quarter: 2009Q3

REPORT INFORMATION
  Report Type: 
  Country: None (occurrence: None)
  Receive Date: 20090805
  Receipt Date: 20090723
  Transmission Date: 20100115
  Serious: Yes (Other)
  Sender: FDA-Public Use
  Company Number: US-PFIZER INC-2009245464

PATIENT
  Sex: Female

DRUGS (5)
  1. CHANTIX [Suspect]
  2. METHADONE HYDROCHLORIDE [Concomitant]
  3. TRAZODONE HYDROCHLORIDE [Concomitant]
  4. LEVETIRACETAM [Concomitant]
  5. ESCITALOPRAM [Concomitant]

REACTIONS (2)
  - ALANINE AMINOTRANSFERASE INCREASED [None]
  - BRAIN NEOPLASM MALIGNANT [None]
